FAERS Safety Report 7559020-0 (Version None)
Quarter: 2011Q2

REPORT INFORMATION
  Report Type: 
  Country: None (occurrence: None)
  Receive Date: 20110621
  Receipt Date: 20110617
  Transmission Date: 20111010
  Serious: No
  Sender: FDA-Public Use
  Company Number: US-PFIZER INC-2011134287

PATIENT
  Age: 64 Year
  Sex: Female
  Weight: 72.562 kg

DRUGS (4)
  1. CALTRATE 600 + D SOFT CHEWS [Suspect]
     Indication: SUPPLEMENTATION THERAPY
     Dosage: TWO CHEWABLE TABLETS DAILY
     Route: 048
     Dates: start: 20110501, end: 20110501
  2. CELEBREX [Suspect]
     Indication: PRODUCT USED FOR UNKNOWN INDICATION
     Dosage: 200 MG, DAILY
     Route: 048
  3. CALTRATE 600 + VITAMIN D [Suspect]
     Indication: SUPPLEMENTATION THERAPY
     Dosage: ONE TABLET DAILY
     Route: 048
  4. TYLENOL-500 [Concomitant]
     Indication: ARTHRITIS
     Dosage: UNKNOWN DOSE, TWO TIMES A DAY

REACTIONS (4)
  - DEFAECATION URGENCY [None]
  - DIARRHOEA [None]
  - POLYDIPSIA [None]
  - DRUG INTOLERANCE [None]
